FAERS Safety Report 4778365-0 (Version None)
Quarter: 2005Q3

REPORT INFORMATION
  Report Type: 
  Country: None (occurrence: None)
  Receive Date: 20050922
  Receipt Date: 20050915
  Transmission Date: 20060218
  Serious: Yes (Hospitalization)
  Sender: FDA-Public Use
  Company Number: SU-2005-004025

PATIENT
  Age: 70 Year
  Sex: Male
  Weight: 113.3993 kg

DRUGS (4)
  1. BENICAR HCT [Suspect]
     Indication: HYPERTENSION
     Dosage: 40.125 MG QD PO
     Route: 048
     Dates: start: 20020101, end: 20050822
  2. DYNACIRC [Concomitant]
  3. PRAVACHOL [Concomitant]
  4. NORVASC [Concomitant]

REACTIONS (5)
  - HIP SURGERY [None]
  - HYPERSENSITIVITY [None]
  - PHARYNGEAL OEDEMA [None]
  - SWELLING FACE [None]
  - SWOLLEN TONGUE [None]
